FAERS Safety Report 24595319 (Version 1)
Quarter: 2024Q4

REPORT INFORMATION
  Report Type: Spontaneous
  Country: US (occurrence: US)
  Receive Date: 20241109
  Receipt Date: 20241109
  Transmission Date: 20250115
  Serious: Yes (Hospitalization)
  Sender: JOHNSON AND JOHNSON
  Company Number: US-JNJFOC-20241108613

PATIENT
  Sex: Male

DRUGS (4)
  1. INVEGA TRINZA [Suspect]
     Active Substance: PALIPERIDONE PALMITATE
     Indication: Product used for unknown indication
     Dosage: LAST ADMINISTERED DATE:18-OCT-2024
     Route: 030
  2. INVEGA TRINZA [Suspect]
     Active Substance: PALIPERIDONE PALMITATE
  3. INVEGA TRINZA [Suspect]
     Active Substance: PALIPERIDONE PALMITATE
  4. INVEGA [Concomitant]
     Active Substance: PALIPERIDONE
     Route: 048
     Dates: start: 20241018

REACTIONS (5)
  - Product dose omission issue [Unknown]
  - Paranoia [Unknown]
  - Treatment noncompliance [Unknown]
  - Illness [Unknown]
  - Adverse event [Unknown]
